FAERS Safety Report 18920961 (Version 1)
Quarter: 2021Q1

REPORT INFORMATION
  Report Type: Spontaneous
  Country: LB (occurrence: LB)
  Receive Date: 20210222
  Receipt Date: 20210222
  Transmission Date: 20210420
  Serious: Yes (Death, Hospitalization)
  Sender: FDA-Public Use
  Company Number: LB-ASTRAZENECA-2021A065074

PATIENT
  Age: 50 Year
  Sex: Male

DRUGS (1)
  1. TAGRISSO [Suspect]
     Active Substance: OSIMERTINIB
     Indication: BREAST CANCER
     Route: 048
     Dates: end: 20210119

REACTIONS (4)
  - Viral infection [Fatal]
  - Oxygen saturation decreased [Fatal]
  - Pneumonitis [Fatal]
  - Aspergillus infection [Fatal]

NARRATIVE: CASE EVENT DATE: 20210104
